FAERS Safety Report 11277230 (Version 1)
Quarter: 2015Q3

REPORT INFORMATION
  Report Type: Spontaneous
  Country: US (occurrence: US)
  Receive Date: 20150716
  Receipt Date: 20150716
  Transmission Date: 20151125
  Serious: Yes (Death, Hospitalization, Other)
  Sender: FDA-Public Use
  Company Number: US-JNJFOC-20150603763

PATIENT
  Age: 75 Year
  Sex: Male

DRUGS (1)
  1. IMBRUVICA [Suspect]
     Active Substance: IBRUTINIB
     Indication: MANTLE CELL LYMPHOMA
     Route: 048
     Dates: start: 20150519, end: 20150526

REACTIONS (15)
  - Acute respiratory failure [Recovering/Resolving]
  - Atrial fibrillation [Recovered/Resolved]
  - Leukocytosis [Recovering/Resolving]
  - Tumour lysis syndrome [Recovered/Resolved]
  - Encephalopathy [Unknown]
  - Pericardial effusion [Unknown]
  - Asthenia [Unknown]
  - Acute kidney injury [Unknown]
  - Hallucination [Unknown]
  - Bronchopulmonary aspergillosis [Fatal]
  - Ventricular extrasystoles [Recovered/Resolved]
  - Fatigue [Unknown]
  - Metastases to peritoneum [Unknown]
  - Diarrhoea [Unknown]
  - Headache [Unknown]

NARRATIVE: CASE EVENT DATE: 201505
